FAERS Safety Report 24961257 (Version 1)
Quarter: 2025Q1

REPORT INFORMATION
  Report Type: Spontaneous
  Country: CN (occurrence: CN)
  Receive Date: 20250212
  Receipt Date: 20250212
  Transmission Date: 20250408
  Serious: Yes (Hospitalization)
  Sender: MERCK KGAA
  Company Number: CN-Merck Healthcare KGaA-2025006370

PATIENT
  Sex: Female

DRUGS (1)
  1. EUTHYROX [Suspect]
     Active Substance: LEVOTHYROXINE SODIUM
     Indication: Hypothyroidism
     Route: 048

REACTIONS (2)
  - Hypertension [Unknown]
  - Maternal exposure during pregnancy [Unknown]
